FAERS Safety Report 16053937 (Version 1)
Quarter: 2019Q1

REPORT INFORMATION
  Report Type: Spontaneous
  Country: US (occurrence: US)
  Receive Date: 20190308
  Receipt Date: 20190308
  Transmission Date: 20190418
  Serious: Yes (Other)
  Sender: FDA-Public Use
  Company Number: US-ELI_LILLY_AND_COMPANY-US201903000925

PATIENT
  Age: 62 Year
  Sex: Male

DRUGS (1)
  1. CIALIS [Suspect]
     Active Substance: TADALAFIL
     Indication: PROSTATIC DISORDER
     Dosage: 5 MG, DAILY
     Route: 048
     Dates: start: 2013

REACTIONS (7)
  - Pain in extremity [Recovering/Resolving]
  - Head injury [Recovering/Resolving]
  - Hypoaesthesia [Not Recovered/Not Resolved]
  - Nerve compression [Recovering/Resolving]
  - Back pain [Recovering/Resolving]
  - Hypersensitivity [Unknown]
  - Intervertebral disc disorder [Recovering/Resolving]

NARRATIVE: CASE EVENT DATE: 2017
